FAERS Safety Report 17697257 (Version 1)
Quarter: 2020Q2

REPORT INFORMATION
  Report Type: Spontaneous
  Country: US (occurrence: US)
  Receive Date: 20200423
  Receipt Date: 20200423
  Transmission Date: 20200714
  Serious: No
  Sender: FDA-Public Use
  Company Number: US-AMGEN-USASP2020062989

PATIENT
  Age: 70 Year
  Sex: Female

DRUGS (1)
  1. REPATHA [Suspect]
     Active Substance: EVOLOCUMAB
     Indication: PRODUCT USED FOR UNKNOWN INDICATION
     Dosage: UNK
     Route: 065
     Dates: start: 202003

REACTIONS (8)
  - Gingival discomfort [Unknown]
  - Ear discomfort [Unknown]
  - Ulcer [Unknown]
  - Oropharyngeal pain [Not Recovered/Not Resolved]
  - Pruritus [Unknown]
  - Tongue discomfort [Unknown]
  - Rhinorrhoea [Unknown]
  - Musculoskeletal discomfort [Unknown]

NARRATIVE: CASE EVENT DATE: 2020
